FAERS Safety Report 7344818-4 (Version None)
Quarter: 2011Q1

REPORT INFORMATION
  Report Type: 
  Country: None (occurrence: None)
  Receive Date: 20110310
  Receipt Date: 20110301
  Transmission Date: 20110831
  Serious: Yes (Other)
  Sender: FDA-Public Use
  Company Number: GB-BAYER-2011-014112

PATIENT
  Sex: Female
  Weight: 116 kg

DRUGS (7)
  1. ATENOLOL [Concomitant]
     Dosage: UNK
     Route: 048
  2. CYCLIZINE [Concomitant]
     Dosage: UNK
     Route: 048
  3. NORDETTE-28 [Concomitant]
     Dosage: UNK
     Route: 048
  4. OROMORPH [Concomitant]
     Dosage: UNK
     Route: 048
     Dates: start: 20101105
  5. SORAFENIB (RAF KINASE INHIBITOR) [Suspect]
     Indication: SALIVARY GLAND CANCER
     Dosage: DAILY DOSE 800 MG
     Route: 048
     Dates: start: 20101022, end: 20110204
  6. MORPHINE SULFATE [Concomitant]
     Dosage: UNK
     Route: 048
     Dates: start: 20101105
  7. AMLODIPINE [Concomitant]
     Dosage: UNK
     Route: 048

REACTIONS (1)
  - SKIN ULCER [None]
